FAERS Safety Report 21133158 (Version 1)
Quarter: 2022Q3

REPORT INFORMATION
  Report Type: Spontaneous
  Country: US (occurrence: None)
  Receive Date: 20220726
  Receipt Date: 20220726
  Transmission Date: 20221026
  Serious: Yes (Other)
  Sender: FDA-Public Use
  Company Number: None

PATIENT
  Age: 35 Year
  Sex: Male

DRUGS (1)
  1. DESCOVY [Suspect]
     Active Substance: EMTRICITABINE\TENOFOVIR ALAFENAMIDE FUMARATE
     Indication: Drug therapy
     Dosage: FREQUENCY : DAILY;?
     Route: 048
     Dates: start: 20220722, end: 20220725

REACTIONS (6)
  - Neuralgia [None]
  - Abdominal pain [None]
  - Abdominal pain [None]
  - Restlessness [None]
  - Feeling abnormal [None]
  - Musculoskeletal disorder [None]

NARRATIVE: CASE EVENT DATE: 20220722
